FAERS Safety Report 17660055 (Version 1)
Quarter: 2020Q2

REPORT INFORMATION
  Report Type: Spontaneous
  Country: US (occurrence: US)
  Receive Date: 20200410
  Receipt Date: 20200410
  Transmission Date: 20200713
  Serious: No
  Sender: FDA-Public Use
  Company Number: None

PATIENT
  Age: 88 Year
  Sex: Male

DRUGS (1)
  1. YONSA [Suspect]
     Active Substance: ABIRATERONE ACETATE
     Indication: PROSTATE CANCER
     Route: 048
     Dates: start: 20200407, end: 20200409

REACTIONS (4)
  - Product prescribing error [None]
  - Incorrect dose administered [None]
  - Product dispensing error [None]
  - Transcription medication error [None]

NARRATIVE: CASE EVENT DATE: 20200407
